FAERS Safety Report 8568131 (Version 4)
Quarter: 2016Q3

REPORT INFORMATION
  Report Type: Report from Study
  Country: US (occurrence: US)
  Receive Date: 20120518
  Receipt Date: 20160812
  Transmission Date: 20161109
  Serious: Yes (Hospitalization, Other)
  Sender: FDA-Public Use
  Company Number: US-ROCHE-1067220

PATIENT
  Age: 59 Year
  Sex: Male
  Weight: 85.4 kg

DRUGS (2)
  1. ERLOTINIB [Suspect]
     Active Substance: ERLOTINIB
     Indication: ADENOCARCINOMA PANCREAS
     Dosage: LAST DOSE ADMINISTERED PRIOR TO SAE 29/APR/2012
     Route: 048
     Dates: start: 20120421
  2. VISMODEGIB [Suspect]
     Active Substance: VISMODEGIB
     Indication: ADENOCARCINOMA PANCREAS
     Dosage: LAST DOSE ADMINISTERED PRIOR TO SAE 29/APR/2012
     Route: 048
     Dates: start: 20120421

REACTIONS (10)
  - Ascites [Recovering/Resolving]
  - Incorrect dose administered [Unknown]
  - Abdominal distension [Recovering/Resolving]
  - Small intestinal obstruction [Recovering/Resolving]
  - Candida infection [Recovering/Resolving]
  - Dehydration [Recovering/Resolving]
  - Hyponatraemia [Recovering/Resolving]
  - Abdominal pain [Recovering/Resolving]
  - Hypoalbuminaemia [Recovering/Resolving]
  - Blood bilirubin increased [Recovering/Resolving]

NARRATIVE: CASE EVENT DATE: 20120426
